FAERS Safety Report 22136330 (Version 2)
Quarter: 2024Q2

REPORT INFORMATION
  Report Type: Spontaneous
  Country: CN (occurrence: CN)
  Receive Date: 20230324
  Receipt Date: 20240621
  Transmission Date: 20240716
  Serious: Yes (Other)
  Sender: FDA-Public Use
  Company Number: CN-ABBVIE-4699406

PATIENT
  Age: 74 Year
  Sex: Female
  Weight: 47 kg

DRUGS (3)
  1. VENCLEXTA [Suspect]
     Active Substance: VENETOCLAX
     Indication: Acute myeloid leukaemia
     Dosage: 100 MILLIGRAM
     Route: 048
     Dates: start: 20230207, end: 20230214
  2. STERILE WATER FOR INJECTION [Concomitant]
     Active Substance: WATER
     Indication: Product used for unknown indication
     Dosage: 4 ML
  3. AZACITIDINE [Suspect]
     Active Substance: AZACITIDINE
     Indication: Acute myeloid leukaemia
     Dosage: 100 MILLIGRAM
     Route: 030
     Dates: start: 20230207, end: 20230214

REACTIONS (3)
  - Myelosuppression [Recovering/Resolving]
  - Anaemia [Unknown]
  - Thrombocytopenia [Unknown]

NARRATIVE: CASE EVENT DATE: 20230101
